FAERS Safety Report 7892355-0 (Version None)
Quarter: 2011Q4

REPORT INFORMATION
  Report Type: 
  Country: None (occurrence: None)
  Receive Date: 20111101
  Receipt Date: 20111020
  Transmission Date: 20120403
  Serious: Yes (Hospitalization, Other)
  Sender: FDA-Public Use
  Company Number: JPI-P-009795

PATIENT
  Age: 75 Year
  Sex: Male

DRUGS (12)
  1. ATENOLOL [Concomitant]
  2. TRAZODONE HYDROCHLORIDE [Concomitant]
  3. GALANTAMINE HYDROBROMIDE [Concomitant]
  4. XYREM [Suspect]
     Indication: NARCOLEPSY
     Dosage: 4.5 GM (2.25 GM,2 IN 1 D),ORAL
     Route: 048
     Dates: start: 20090521
  5. VITAMIN B21 [Concomitant]
  6. FISH OIL [Concomitant]
  7. MODAFINIL [Concomitant]
  8. GABAPENTIN [Concomitant]
  9. PAROXETINE HCL [Concomitant]
  10. INSULIN [Concomitant]
  11. ASPIRIN [Concomitant]
  12. SIMVASTATIN [Concomitant]

REACTIONS (1)
  - PROSTATE CANCER [None]
